FAERS Safety Report 10933985 (Version 4)
Quarter: 2015Q2

REPORT INFORMATION
  Report Type: Spontaneous
  Country: GB (occurrence: None)
  Receive Date: 20150318
  Receipt Date: 20150415
  Transmission Date: 20150821
  Serious: Yes (Death)
  Sender: FDA-Public Use
  Company Number: GB-2015-0659

PATIENT
  Age: 71 Year
  Sex: Female
  Weight: 64.3 kg

DRUGS (10)
  1. ABACAVIR (ABACAVIR) [Suspect]
     Active Substance: ABACAVIR
     Indication: CHEMOTHERAPY
  2. DEXAMETHASONE (DEXAMETHASONE SODIUM PHOSPHATE) [Concomitant]
  3. ATENOLOL. [Concomitant]
     Active Substance: ATENOLOL
  4. VINORELBINE INN [Suspect]
     Active Substance: VINORELBINE TARTRATE
     Indication: CHEMOTHERAPY
     Dosage: 40 MG OVER TEN MINUTES; INTRAVENOUS
     Route: 042
     Dates: start: 20150115, end: 20150115
  5. ABACAVIR (ABACAVIR) [Suspect]
     Active Substance: ABACAVIR
     Indication: LUNG NEOPLASM MALIGNANT
  6. ONDANSETRON [Concomitant]
     Active Substance: ONDANSETRON
     Indication: CHEMOTHERAPY
  7. CARBOPLATIN (CARBOPLATIN) [Suspect]
     Active Substance: CARBOPLATIN
     Indication: CHEMOTHERAPY
     Dosage: 1 DAY, 15 MLS INFUSION (400MG IN 500ML), INTRAVENOUS
     Route: 042
     Dates: start: 20150115, end: 20150115
  8. CARBOPLATIN (CARBOPLATIN) [Suspect]
     Active Substance: CARBOPLATIN
     Indication: LUNG NEOPLASM MALIGNANT
     Dosage: 1 DAY, 15 MLS INFUSION (400MG IN 500ML), INTRAVENOUS
     Route: 042
     Dates: start: 20150115, end: 20150115
  9. ONDANSETRON [Concomitant]
     Active Substance: ONDANSETRON
     Indication: LUNG NEOPLASM MALIGNANT
  10. VINORELBINE INN [Suspect]
     Active Substance: VINORELBINE TARTRATE
     Indication: LUNG NEOPLASM MALIGNANT
     Dosage: 40 MG OVER TEN MINUTES; INTRAVENOUS
     Route: 042
     Dates: start: 20150115, end: 20150115

REACTIONS (15)
  - Pain [None]
  - Depressed level of consciousness [None]
  - General physical health deterioration [None]
  - Back pain [None]
  - Malaise [None]
  - Cold sweat [None]
  - Hypersensitivity [None]
  - Infusion related reaction [None]
  - Cardiopulmonary failure [None]
  - Pulmonary embolism [None]
  - Flushing [None]
  - Oxygen saturation decreased [None]
  - Drug hypersensitivity [None]
  - Dyspnoea [None]
  - Hypotension [None]

NARRATIVE: CASE EVENT DATE: 20150115
